FAERS Safety Report 6922864-X (Version None)
Quarter: 2010Q3

REPORT INFORMATION
  Report Type: 
  Country: None (occurrence: None)
  Receive Date: 20100813
  Receipt Date: 20100803
  Transmission Date: 20110219
  Serious: Yes (Other)
  Sender: FDA-Public Use
  Company Number: GB-BRISTOL-MYERS SQUIBB COMPANY-15235948

PATIENT
  Age: 55 Year
  Sex: Male

DRUGS (6)
  1. GLUCOPHAGE [Suspect]
     Indication: DIABETES MELLITUS
     Dosage: GLUCOPHAGE XR 1000MG
  2. FENOFIBRATE [Suspect]
  3. METFORMIN HCL [Suspect]
     Indication: DIABETES MELLITUS
  4. PIOGLITAZONE HCL [Suspect]
  5. NATEGLINIDE [Suspect]
  6. LIPITOR [Suspect]

REACTIONS (1)
  - HEPATITIS [None]
